FAERS Safety Report 8781722 (Version 1)
Quarter: 2012Q4

REPORT INFORMATION
  Report Type: 
  Country: CH (occurrence: CH)
  Receive Date: 20120913
  Receipt Date: 20120913
  Transmission Date: 20130627
  Serious: Yes (Other)
  Sender: FDA-Public Use
  Company Number: CH-JNJFOC-20120903894

PATIENT

DRUGS (2)
  1. ACETAMINOPHEN [Suspect]
     Indication: PRODUCT USED FOR UNKNOWN INDICATION
     Route: 063
  2. ACETAMINOPHEN [Suspect]
     Indication: EXPOSURE DURING BREAST FEEDING
     Route: 063

REACTIONS (3)
  - Toxicity to various agents [Unknown]
  - Medication error [Unknown]
  - Breast feeding [Unknown]
